FAERS Safety Report 24609473 (Version 3)
Quarter: 2024Q4

REPORT INFORMATION
  Report Type: Spontaneous
  Country: US (occurrence: US)
  Receive Date: 20241112
  Receipt Date: 20241213
  Transmission Date: 20250115
  Serious: Yes (Other)
  Sender: AUROBINDO
  Company Number: US-AUROBINDO-AUR-APL-2024-056099

PATIENT
  Age: 18 Year
  Sex: Female
  Weight: 54.431 kg

DRUGS (1)
  1. ETHINYL ESTRADIOL\NORETHINDRONE [Suspect]
     Active Substance: ETHINYL ESTRADIOL\NORETHINDRONE
     Indication: Contraception
     Dosage: UNK
     Route: 065

REACTIONS (2)
  - Drug ineffective [Unknown]
  - Pregnancy [Unknown]

NARRATIVE: CASE EVENT DATE: 20231001
